FAERS Safety Report 24618177 (Version 1)
Quarter: 2024Q4

REPORT INFORMATION
  Report Type: Spontaneous
  Country: CN (occurrence: CN)
  Receive Date: 20241114
  Receipt Date: 20241114
  Transmission Date: 20250114
  Serious: Yes (Hospitalization)
  Sender: MYLAN
  Company Number: CN-MYLANLABS-2024M1100003

PATIENT
  Age: 14 Year
  Sex: Female
  Weight: 41 kg

DRUGS (2)
  1. ZOLOFT [Suspect]
     Active Substance: SERTRALINE HYDROCHLORIDE
     Indication: Depression
     Dosage: 28 DOSAGE FORM, QD
     Route: 048
     Dates: start: 20241017, end: 20241017
  2. ALPRAZOLAM [Suspect]
     Active Substance: ALPRAZOLAM
     Indication: Depression
     Dosage: 30 DOSAGE FORM, QD
     Route: 048
     Dates: start: 20241017, end: 20241017

REACTIONS (3)
  - Red blood cell count increased [Recovering/Resolving]
  - Blood calcium decreased [Recovering/Resolving]
  - Muscular weakness [Recovering/Resolving]

NARRATIVE: CASE EVENT DATE: 20241017
